FAERS Safety Report 25317673 (Version 1)
Quarter: 2025Q2

REPORT INFORMATION
  Report Type: Spontaneous
  Country: IR (occurrence: IR)
  Receive Date: 20250515
  Receipt Date: 20250515
  Transmission Date: 20250717
  Serious: No
  Sender: ALKEM
  Company Number: IR-ALKEM LABORATORIES LIMITED-IR-ALKEM-2024-23735

PATIENT
  Age: 38 Year
  Sex: Female

DRUGS (1)
  1. AZATHIOPRINE [Suspect]
     Active Substance: AZATHIOPRINE
     Indication: Myopathy
     Route: 065

REACTIONS (1)
  - Therapy non-responder [Unknown]
